FAERS Safety Report 6064877-9 (Version None)
Quarter: 2009Q1

REPORT INFORMATION
  Report Type: 
  Country: None (occurrence: None)
  Receive Date: 20090203
  Receipt Date: 20090203
  Transmission Date: 20090719
  Serious: No
  Sender: FDA-Public Use
  Company Number: None

PATIENT
  Age: 56 Year
  Sex: Male

DRUGS (1)
  1. SPIRIVA [Suspect]
     Dosage: INHALE THE CONTENTS OF 1 CAPSULE DAILY
     Route: 055

REACTIONS (1)
  - PRODUCT QUALITY ISSUE [None]
